FAERS Safety Report 22217496 (Version 2)
Quarter: 2023Q2

REPORT INFORMATION
  Report Type: Spontaneous
  Country: US (occurrence: None)
  Receive Date: 20230417
  Receipt Date: 20230524
  Transmission Date: 20230722
  Serious: No
  Sender: FDA-Public Use
  Company Number: 2023A071856

PATIENT
  Age: 829 Month
  Sex: Female
  Weight: 93 kg

DRUGS (1)
  1. SYMBICORT [Suspect]
     Active Substance: BUDESONIDE\FORMOTEROL FUMARATE DIHYDRATE
     Indication: Bronchiectasis
     Dosage: 80MCG/4.5MCG VIA INHALATION, 2 INHALATIONS TWICE DAILY
     Route: 055

REACTIONS (6)
  - Infection [Unknown]
  - Dyspnoea [Unknown]
  - Device ineffective [Unknown]
  - Product use issue [Unknown]
  - Device use issue [Unknown]
  - Chest discomfort [Unknown]

NARRATIVE: CASE EVENT DATE: 20230301
